FAERS Safety Report 16934462 (Version 3)
Quarter: 2025Q3

REPORT INFORMATION
  Report Type: Report from Study
  Country: DO (occurrence: DO)
  Receive Date: 20191018
  Receipt Date: 20250714
  Transmission Date: 20251020
  Serious: Yes (Other)
  Sender: NOVARTIS
  Company Number: None

PATIENT
  Age: 28 Year
  Sex: Female

DRUGS (4)
  1. GILENYA [Suspect]
     Active Substance: FINGOLIMOD HYDROCHLORIDE
     Indication: Relapsing-remitting multiple sclerosis
     Route: 048
     Dates: start: 20190514
  2. GILENYA [Suspect]
     Active Substance: FINGOLIMOD HYDROCHLORIDE
     Route: 048
  3. GILENYA [Suspect]
     Active Substance: FINGOLIMOD HYDROCHLORIDE
     Dosage: 0.5 MG, QD
     Route: 048
     Dates: start: 20210701
  4. GILENYA [Suspect]
     Active Substance: FINGOLIMOD HYDROCHLORIDE
     Dosage: 0.5 MG, QD
     Route: 048
     Dates: start: 20220214

REACTIONS (21)
  - Multiple sclerosis relapse [Recovered/Resolved]
  - Lymphopenia [Not Recovered/Not Resolved]
  - Gait disturbance [Unknown]
  - Pain [Unknown]
  - Pyrexia [Unknown]
  - Muscular weakness [Unknown]
  - Chills [Unknown]
  - Dehydration [Unknown]
  - Conversion disorder [Unknown]
  - Anxiety [Unknown]
  - Blood pressure abnormal [Unknown]
  - Headache [Unknown]
  - Oropharyngeal discomfort [Unknown]
  - Influenza [Unknown]
  - White blood cell count decreased [Unknown]
  - Agitation [Unknown]
  - Weight decreased [Unknown]
  - Product availability issue [Unknown]
  - Prescribed underdose [Unknown]
  - Off label use [Unknown]
  - Product dose omission issue [Unknown]

NARRATIVE: CASE EVENT DATE: 20200428
